FAERS Safety Report 11295108 (Version 1)
Quarter: 2015Q3

REPORT INFORMATION
  Report Type: Spontaneous
  Country: US (occurrence: US)
  Receive Date: 20150723
  Receipt Date: 20150723
  Transmission Date: 20151125
  Serious: No
  Sender: FDA-Public Use
  Company Number: US-009507513-1507USA009737

PATIENT
  Age: 50 Year
  Sex: Female

DRUGS (1)
  1. JANUMET [Suspect]
     Active Substance: METFORMIN HYDROCHLORIDE\SITAGLIPTIN PHOSPHATE
     Indication: DIABETES MELLITUS MANAGEMENT
     Dosage: ONE DOSE
     Route: 048
     Dates: start: 20150713, end: 201507

REACTIONS (1)
  - Urticaria [Unknown]

NARRATIVE: CASE EVENT DATE: 20150713
